FAERS Safety Report 17984449 (Version 2)
Quarter: 2020Q3

REPORT INFORMATION
  Report Type: Spontaneous
  Country: PT (occurrence: PT)
  Receive Date: 20200706
  Receipt Date: 20200902
  Transmission Date: 20201103
  Serious: Yes (Other)
  Sender: FDA-Public Use
  Company Number: PT-MYLANLABS-2020M1060148

PATIENT
  Sex: Female

DRUGS (1)
  1. VENLAFAXINE 150 MG PROLONGED?RELEASE CAPSULES, HARD [Suspect]
     Active Substance: VENLAFAXINE HYDROCHLORIDE
     Indication: PRODUCT USED FOR UNKNOWN INDICATION
     Dosage: 150 MILLIGRAM

REACTIONS (3)
  - Product size issue [Unknown]
  - Foreign body in throat [Unknown]
  - Medication error [Unknown]
